FAERS Safety Report 8245879-0 (Version None)
Quarter: 2012Q1

REPORT INFORMATION
  Report Type: 
  Country: None (occurrence: None)
  Receive Date: 20120328
  Receipt Date: 20120328
  Transmission Date: 20120608
  Serious: No
  Sender: FDA-Public Use
  Company Number: None

PATIENT
  Sex: Female
  Weight: 61.2356 kg

DRUGS (1)
  1. PARAGARD T 380A [Suspect]

REACTIONS (8)
  - DYSMENORRHOEA [None]
  - LIBIDO DECREASED [None]
  - FAMILY STRESS [None]
  - PAIN [None]
  - HYPOAESTHESIA [None]
  - INFECTION [None]
  - DEPRESSION [None]
  - MENTAL DISORDER [None]
